FAERS Safety Report 6244531-0 (Version None)
Quarter: 2009Q2

REPORT INFORMATION
  Report Type: 
  Country: None (occurrence: None)
  Receive Date: 20090623
  Receipt Date: 20090609
  Transmission Date: 20091009
  Serious: Yes (Hospitalization)
  Sender: FDA-Public Use
  Company Number: DSU-2009-01228

PATIENT
  Age: 68 Year
  Sex: Male

DRUGS (5)
  1. OLMESARTAN MEDOXOMIL AND HYDROCHLOROTHIZIDE [Suspect]
     Indication: HYPERTENSION
     Dosage: 20/12.5 MG, QD, PER ORAL
     Route: 048
     Dates: end: 20090605
  2. NORVASC [Suspect]
     Indication: HYPERTENSION
     Dosage: 5 MG (5 MG, QD, PER ORAL)
     Route: 048
     Dates: end: 20090605
  3. LIPITOR [Suspect]
     Indication: HYPERTENSION
     Dosage: 10 MG (10 MG, QD), PER ORAL
     Route: 048
     Dates: end: 20090605
  4. METOPROLOL SUCCINATE [Concomitant]
  5. SPIRONOLACTONE [Concomitant]

REACTIONS (6)
  - ABDOMINAL PAIN [None]
  - ANAEMIA [None]
  - ASTHENIA [None]
  - DUODENAL ULCER [None]
  - MUCOSAL DISCOLOURATION [None]
  - RENAL FAILURE ACUTE [None]
